FAERS Safety Report 8275046-6 (Version None)
Quarter: 2012Q2

REPORT INFORMATION
  Report Type: 
  Country: None (occurrence: None)
  Receive Date: 20120411
  Receipt Date: 20120406
  Transmission Date: 20120825
  Serious: Yes (Hospitalization, Disabling, Other)
  Sender: FDA-Public Use
  Company Number: US-PFIZER INC-2012088084

PATIENT
  Sex: Female

DRUGS (7)
  1. REMERON [Concomitant]
     Dosage: UNK
  2. POTASSIUM [Concomitant]
     Dosage: UNK
  3. GEODON [Suspect]
     Dosage: 80 MG, 2 TABLETS AT HOUR OF SLEEP
  4. INDERAL [Concomitant]
     Dosage: UNK
  5. TYLENOL W/ CODEINE NO. 3 [Concomitant]
     Dosage: UNK
  6. XANAX [Concomitant]
     Dosage: UNK
  7. LASIX [Concomitant]
     Dosage: UNK

REACTIONS (1)
  - BIPOLAR DISORDER [None]
